FAERS Safety Report 4397411-X (Version None)
Quarter: 2004Q3

REPORT INFORMATION
  Report Type: 
  Country: None (occurrence: None)
  Receive Date: 20040708
  Receipt Date: 20040623
  Transmission Date: 20050211
  Serious: Yes (Death)
  Sender: FDA-Public Use
  Company Number: 2004220971JP

PATIENT
  Age: 77 Year
  Sex: Male

DRUGS (1)
  1. SOLU-MEDROL [Suspect]
     Indication: FACIAL PALSY
     Dosage: IV
     Route: 042

REACTIONS (2)
  - COMPLETED SUICIDE [None]
  - DEPRESSION [None]
